FAERS Safety Report 23330489 (Version 1)
Quarter: 2023Q4

REPORT INFORMATION
  Report Type: Spontaneous
  Country: US (occurrence: US)
  Receive Date: 20231222
  Receipt Date: 20231222
  Transmission Date: 20240110
  Serious: Yes (Hospitalization)
  Sender: FDA-Public Use
  Company Number: US-009507513-2312USA008164

PATIENT
  Age: 61 Year
  Sex: Male

DRUGS (1)
  1. KEYTRUDA [Suspect]
     Active Substance: PEMBROLIZUMAB
     Indication: Non-small cell lung cancer stage IV
     Dosage: 4.5 MILLIGRAM/KILOGRAM

REACTIONS (3)
  - Adrenocorticotropic hormone deficiency [Unknown]
  - Adrenal atrophy [Unknown]
  - Product use issue [Unknown]
